FAERS Safety Report 8489098-1 (Version None)
Quarter: 2012Q3

REPORT INFORMATION
  Report Type: 
  Country: None (occurrence: None)
  Receive Date: 20120705
  Receipt Date: 20120629
  Transmission Date: 20120928
  Serious: Yes (Hospitalization)
  Sender: FDA-Public Use
  Company Number: FR-B.I. PHARMACEUTICALS,INC./RIDGEFIELD-2012-FF-00865FF

PATIENT
  Age: 84 Year
  Sex: Female
  Weight: 65 kg

DRUGS (7)
  1. FUROSEMIDE [Concomitant]
     Dosage: 40 MG
  2. INSULINE LENTE [Concomitant]
  3. PERINDOPRIL ERBUMINE [Concomitant]
     Dosage: 8 MG
  4. BISOPROLOL FUMARATE [Concomitant]
     Dosage: 1.25 MG
  5. PRAVASTATIN [Concomitant]
     Dosage: 20 MG
  6. PRADAXA [Suspect]
     Indication: ATRIAL FIBRILLATION
     Dosage: 220 MG
     Route: 048
     Dates: start: 20120511
  7. DIGOXIN [Concomitant]

REACTIONS (3)
  - EXTREMITY NECROSIS [None]
  - LOCALISED INFECTION [None]
  - RENAL FAILURE [None]
